FAERS Safety Report 10090314 (Version 1)
Quarter: 2014Q2

REPORT INFORMATION
  Report Type: Spontaneous
  Country: CA (occurrence: CA)
  Receive Date: 20140421
  Receipt Date: 20140421
  Transmission Date: 20141212
  Serious: Yes (Other)
  Sender: FDA-Public Use
  Company Number: PHHY2014CA045877

PATIENT
  Age: 56 Year
  Sex: Female

DRUGS (1)
  1. METHOTREXATE [Suspect]
     Indication: DERMATITIS ATOPIC

REACTIONS (13)
  - Skin necrosis [Recovered/Resolved]
  - Pyrexia [Unknown]
  - Neutropenia [Unknown]
  - Mouth ulceration [Unknown]
  - Pruritus [Unknown]
  - Rash [Recovered/Resolved]
  - Skin ulcer [Recovered/Resolved]
  - Rash generalised [Recovered/Resolved]
  - Skin erosion [Recovered/Resolved]
  - Scab [Recovered/Resolved]
  - Lichenification [Recovered/Resolved]
  - Incorrect dose administered [Unknown]
  - Inappropriate schedule of drug administration [Unknown]
